FAERS Safety Report 20360111 (Version 2)
Quarter: 2022Q1

REPORT INFORMATION
  Report Type: Spontaneous
  Country: US (occurrence: US)
  Receive Date: 20220121
  Receipt Date: 20220218
  Transmission Date: 20220423
  Serious: No
  Sender: FDA-Public Use
  Company Number: US-Vifor (International) Inc.-VIT-2022-00270

PATIENT
  Age: 61 Year
  Sex: Male
  Weight: 141.5 kg

DRUGS (4)
  1. MIRCERA [Suspect]
     Active Substance: METHOXY POLYETHYLENE GLYCOL-EPOETIN BETA
     Indication: Product used for unknown indication
  2. MIRCERA [Suspect]
     Active Substance: METHOXY POLYETHYLENE GLYCOL-EPOETIN BETA
     Route: 042
     Dates: start: 20211211, end: 20211226
  3. DOXERCALCIFEROL [Suspect]
     Active Substance: DOXERCALCIFEROL
     Indication: Hyperparathyroidism
     Route: 042
     Dates: start: 20211026
  4. DOXERCALCIFEROL [Suspect]
     Active Substance: DOXERCALCIFEROL
     Route: 042
     Dates: start: 20211226

REACTIONS (2)
  - Drug hypersensitivity [Recovered/Resolved]
  - Urticaria [Recovered/Resolved]

NARRATIVE: CASE EVENT DATE: 20211226
